FAERS Safety Report 5316425-6 (Version None)
Quarter: 2007Q2

REPORT INFORMATION
  Report Type: 
  Country: None (occurrence: None)
  Receive Date: 20070504
  Receipt Date: 20070423
  Transmission Date: 20071010
  Serious: Yes (Hospitalization, Other)
  Sender: FDA-Public Use
  Company Number: PHFR2007GB01196

PATIENT
  Age: 19 Year
  Sex: Female

DRUGS (4)
  1. CLOPIXOL ACUPHASE [Suspect]
     Indication: PSYCHOTIC DISORDER
     Dosage: 76 MG, QD
     Route: 030
     Dates: start: 20070327
  2. CLOZARIL [Suspect]
     Indication: SCHIZOPHRENIA
     Dosage: 550 MG, QD
     Route: 048
     Dates: start: 19871130, end: 20070324
  3. ESCITALOPRAM OXALATE [Concomitant]
     Indication: DEPRESSION
     Dosage: 20MG / DAY
     Route: 048
  4. LAMOTRIGINE [Concomitant]
     Indication: AFFECTIVE DISORDER
     Dosage: 125MG / DAY
     Route: 048

REACTIONS (16)
  - AGITATION [None]
  - DIARRHOEA [None]
  - DRUG WITHDRAWAL SYNDROME [None]
  - EMOTIONAL DISTRESS [None]
  - EXTRAPYRAMIDAL DISORDER [None]
  - FOOT OPERATION [None]
  - HALLUCINATION [None]
  - HYPERHIDROSIS [None]
  - MENTAL DISORDER [None]
  - MUSCULOSKELETAL STIFFNESS [None]
  - MYALGIA [None]
  - NAUSEA [None]
  - OCULOGYRATION [None]
  - OPISTHOTONUS [None]
  - PSYCHOTIC DISORDER [None]
  - VOMITING [None]
